FAERS Safety Report 4270175-6 (Version None)
Quarter: 2004Q1

REPORT INFORMATION
  Report Type: 
  Country: None (occurrence: None)
  Receive Date: 20040114
  Receipt Date: 20030627
  Transmission Date: 20041129
  Serious: No
  Sender: FDA-Public Use
  Company Number: US-GLAXOSMITHKLINE-A0414335A

PATIENT
  Age: 21 Year
  Sex: Female

DRUGS (5)
  1. WELLBUTRIN [Suspect]
     Indication: ILL-DEFINED DISORDER
     Route: 048
     Dates: start: 20030101
  2. AVANDIA [Suspect]
     Indication: ILL-DEFINED DISORDER
     Route: 065
  3. LEXAPRO [Concomitant]
  4. TRAZODONE HCL [Concomitant]
  5. ORTHO CYCLEN-28 [Concomitant]

REACTIONS (3)
  - PRURITUS [None]
  - RASH [None]
  - RASH PAPULAR [None]
